FAERS Safety Report 11165920 (Version 5)
Quarter: 2015Q3

REPORT INFORMATION
  Report Type: Report from Study
  Country: US (occurrence: US)
  Receive Date: 20150604
  Receipt Date: 20150831
  Transmission Date: 20151125
  Serious: Yes (Death, Life-Threatening, Hospitalization)
  Sender: FDA-Public Use
  Company Number: US-ACTELION-A-US2015-118763

PATIENT
  Age: 50 Year
  Sex: Female

DRUGS (11)
  1. RIFAXIMIN [Concomitant]
     Active Substance: RIFAXIMIN
     Dosage: 550 MG, BID
  2. LANTUS [Concomitant]
     Active Substance: INSULIN GLARGINE
     Dosage: 20 UNK, QHS
  3. MACITENTAN [Suspect]
     Active Substance: MACITENTAN
     Indication: PORTOPULMONARY HYPERTENSION
     Dosage: 10 MG, QD
     Route: 048
     Dates: start: 201504, end: 20150626
  4. URSODIOL. [Concomitant]
     Active Substance: URSODIOL
     Dosage: 300 MG, TID
  5. FUROSEMIDE. [Concomitant]
     Active Substance: FUROSEMIDE
     Dosage: 40 MG, QD
  6. ESCITALOPRAM [Concomitant]
     Active Substance: ESCITALOPRAM OXALATE
     Dosage: 20 MG, QD
  7. SODIUM CHLORIDE. [Concomitant]
     Active Substance: SODIUM CHLORIDE
     Dosage: 1 SPRAY, QID
  8. LACTULOSE. [Concomitant]
     Active Substance: LACTULOSE
     Dosage: 20 G, QD
  9. LEVOTHYROXINE. [Concomitant]
     Active Substance: LEVOTHYROXINE
     Dosage: 125 MCG, QAM
  10. PANTOPRAZOLE [Concomitant]
     Active Substance: PANTOPRAZOLE SODIUM
     Dosage: 40 MG, TID
  11. MIDODRINE [Concomitant]
     Active Substance: MIDODRINE
     Dosage: 10 MG, TID

REACTIONS (13)
  - Disease progression [Fatal]
  - Circulatory collapse [Recovered/Resolved]
  - Aspartate aminotransferase increased [Unknown]
  - Renal failure [Recovering/Resolving]
  - Hepatic failure [Unknown]
  - Acute kidney injury [Recovered/Resolved]
  - Blood bilirubin increased [Unknown]
  - Hepatic mass [Unknown]
  - Pulmonary arterial hypertension [Fatal]
  - Hepatorenal syndrome [Recovered/Resolved]
  - Hepatic encephalopathy [Unknown]
  - Hypotension [Recovered/Resolved]
  - Oesophageal varices haemorrhage [Unknown]

NARRATIVE: CASE EVENT DATE: 20150514
